FAERS Safety Report 20714511 (Version 1)
Quarter: 2022Q2

REPORT INFORMATION
  Report Type: Report from Study
  Country: MX (occurrence: MX)
  Receive Date: 20220415
  Receipt Date: 20220415
  Transmission Date: 20220720
  Serious: Yes (Other)
  Sender: FDA-Public Use
  Company Number: MX-NOVARTISPH-NVSC2022MX086262

PATIENT
  Sex: Male
  Weight: 95 kg

DRUGS (8)
  1. METOPROLOL [Suspect]
     Active Substance: METOPROLOL
     Indication: Hypertension
     Dosage: 1 DOSAGE FORM, QD (1 OF 100 MG)
     Route: 048
     Dates: start: 2010
  2. LOSARTAN [Concomitant]
     Active Substance: LOSARTAN
     Indication: Hypertension
     Dosage: 1 DOSAGE FORM, QD(1 OF 50 MG)
     Route: 048
     Dates: start: 2010
  3. ASPIRIN [Concomitant]
     Active Substance: ASPIRIN
     Indication: Hypertension
     Dosage: 1 DOSAGE FORM, QD
     Route: 048
     Dates: start: 2010
  4. IVERMECTIN [Concomitant]
     Active Substance: IVERMECTIN
     Indication: COVID-19
     Dosage: 1 DOSAGE FORM (EVERY 8 HOURS)
     Route: 048
     Dates: start: 20201117, end: 202011
  5. TYLEX [Concomitant]
     Indication: COVID-19
     Dosage: 1 DOSAGE FORM, 1 OF 750 (EVERY 8 HOURS)
     Route: 048
     Dates: start: 20201117, end: 202011
  6. TYLEX [Concomitant]
     Indication: Viral infection
     Dosage: 1 DOSAGE FORM, 1 OF 750 (EVERY 12 HOURS)
     Route: 048
     Dates: start: 20220127, end: 202202
  7. MELATONIN [Concomitant]
     Active Substance: MELATONIN
     Indication: COVID-19
     Dosage: 1 DOSAGE FORM, EVERY 24 HOURS
     Route: 048
     Dates: start: 202011, end: 202012
  8. VITAMIN D [Concomitant]
     Active Substance: VITAMIN D NOS
     Indication: COVID-19
     Dosage: 1 DOSAGE FORM, EVERY 24 HOURS
     Route: 048
     Dates: start: 202011, end: 202012

REACTIONS (1)
  - Diabetes mellitus [Unknown]

NARRATIVE: CASE EVENT DATE: 20130101
